FAERS Safety Report 17606702 (Version 1)
Quarter: 2020Q1

REPORT INFORMATION
  Report Type: Spontaneous
  Country: KZ (occurrence: KZ)
  Receive Date: 20200331
  Receipt Date: 20200331
  Transmission Date: 20200409
  Serious: Yes (Other)
  Sender: FDA-Public Use
  Company Number: KZ-INFO-000985

PATIENT
  Age: 60 Year
  Sex: Male

DRUGS (1)
  1. ROPIVACAINE 0.2% [Suspect]
     Active Substance: ROPIVACAINE
     Indication: ANALGESIC THERAPY
     Route: 008

REACTIONS (1)
  - Withdrawal syndrome [Recovered/Resolved]
